FAERS Safety Report 10250427 (Version 1)
Quarter: 2014Q2

REPORT INFORMATION
  Report Type: Spontaneous
  Country: US (occurrence: None)
  Receive Date: 20140618
  Receipt Date: 20140618
  Transmission Date: 20141212
  Serious: Yes (Other)
  Sender: FDA-Public Use
  Company Number: AUR-APL-2014-06388

PATIENT
  Age: 46 Year
  Sex: Female

DRUGS (4)
  1. DULOXETINE 60 MG [Suspect]
     Indication: MAJOR DEPRESSION
  2. ZIPRASIDONE [Suspect]
     Indication: MAJOR DEPRESSION
     Dosage: UP TO 80 MG PER DAY
  3. ARIPIPRAZOLE (ARIPIPRAZOLE) [Suspect]
     Indication: MAJOR DEPRESSION
  4. BUSPIRONE (BUSPIRONE) [Concomitant]

REACTIONS (1)
  - Tardive dyskinesia [None]
